FAERS Safety Report 4273012-9 (Version None)
Quarter: 2004Q1

REPORT INFORMATION
  Report Type: 
  Country: None (occurrence: None)
  Receive Date: 20040115
  Receipt Date: 20031217
  Transmission Date: 20041129
  Serious: No
  Sender: FDA-Public Use
  Company Number: 6959

PATIENT
  Age: 81 Year
  Sex: Male

DRUGS (4)
  1. AMIODARONE [Suspect]
     Indication: MYOCARDIAL INFARCTION
  2. AMIODARONE [Suspect]
     Indication: VENTRICULAR EXTRASYSTOLES
  3. BETA BLOCKING AGENT [Concomitant]
  4. PROPYLTHIOURACIL [Concomitant]

REACTIONS (6)
  - BRADYCARDIA [None]
  - CARDIAC FAILURE [None]
  - DRUG INTERACTION [None]
  - HYPERTHYROIDISM [None]
  - SINUS ARREST [None]
  - VENTRICULAR ARRHYTHMIA [None]
